FAERS Safety Report 8390459-X (Version None)
Quarter: 2012Q2

REPORT INFORMATION
  Report Type: 
  Country: None (occurrence: None)
  Receive Date: 20120529
  Receipt Date: 20120516
  Transmission Date: 20120825
  Serious: Yes (Other)
  Sender: FDA-Public Use
  Company Number: SE-JNJFOC-20120514344

PATIENT
  Sex: Male

DRUGS (3)
  1. LEVOTHYROXINE SODIUM [Concomitant]
     Route: 065
  2. REMICADE [Suspect]
     Indication: COLITIS ULCERATIVE
     Route: 042
     Dates: start: 20080430, end: 20111116
  3. NEXIUM [Concomitant]
     Route: 065

REACTIONS (2)
  - RENAL FAILURE [None]
  - SARCOIDOSIS [None]
